FAERS Safety Report 10121364 (Version 4)
Quarter: 2014Q2

REPORT INFORMATION
  Report Type: Report from Study
  Country: AU (occurrence: AU)
  Receive Date: 20140425
  Receipt Date: 20140623
  Transmission Date: 20141212
  Serious: Yes (Life-Threatening, Hospitalization, Disabling, Other)
  Sender: FDA-Public Use
  Company Number: PHHY2014AU050563

PATIENT
  Age: 83 Year
  Sex: Female

DRUGS (6)
  1. ACLASTA [Suspect]
     Dosage: 5 MG, UNK
     Route: 042
     Dates: start: 20120110
  2. ACLASTA [Suspect]
     Dosage: 5 MG, UNK
     Route: 042
     Dates: start: 20130404
  3. ARICEPT [Concomitant]
     Dosage: 10 MG, DAILY
     Route: 048
     Dates: start: 20130604
  4. ATORVASTATIN [Concomitant]
     Dosage: 40 MG, DAILY
     Route: 048
  5. LEXAPRO [Concomitant]
     Dosage: 10 MG, DAILY
     Route: 048
  6. TENACE [Concomitant]
     Dosage: 10 MG, DAILY
     Route: 048

REACTIONS (7)
  - Malaise [Recovering/Resolving]
  - Dementia Alzheimer^s type [Recovering/Resolving]
  - Abnormal behaviour [Unknown]
  - Disturbance in attention [Unknown]
  - Emotional distress [Unknown]
  - Diarrhoea [Recovering/Resolving]
  - Nausea [Unknown]
